FAERS Safety Report 7085906-X (Version None)
Quarter: 2010Q4

REPORT INFORMATION
  Report Type: 
  Country: None (occurrence: None)
  Receive Date: 20101105
  Receipt Date: 20101101
  Transmission Date: 20110411
  Serious: Yes (Hospitalization, Other)
  Sender: FDA-Public Use
  Company Number: US-SANOFI-AVENTIS-2010SA066831

PATIENT
  Age: 55 Year
  Sex: Female

DRUGS (7)
  1. LANTUS [Suspect]
     Dosage: DOSE:12 UNIT(S)
     Route: 058
     Dates: start: 20050101
  2. SOLOSTAR [Suspect]
     Dates: start: 20050101
  3. HUMALOG [Suspect]
     Dosage: EACH MEAL DOSE:6 UNIT(S)
  4. ISOSORBIDE MONONITRATE [Concomitant]
     Route: 048
  5. ENALAPRIL MALEATE [Concomitant]
  6. ATENOLOL [Concomitant]
     Route: 065
  7. NOVOLOG [Concomitant]

REACTIONS (4)
  - DIZZINESS [None]
  - DRUG DISPENSING ERROR [None]
  - HYPOGLYCAEMIC UNCONSCIOUSNESS [None]
  - TRANSIENT ISCHAEMIC ATTACK [None]
